FAERS Safety Report 11120672 (Version 1)
Quarter: 2015Q2

REPORT INFORMATION
  Report Type: Report from Study
  Country: IN (occurrence: IN)
  Receive Date: 20150519
  Receipt Date: 20150519
  Transmission Date: 20150821
  Serious: Yes (Death, Hospitalization)
  Sender: FDA-Public Use
  Company Number: IN-BAYER-2015-214839

PATIENT
  Age: 68 Year
  Sex: Male

DRUGS (1)
  1. NEXAVAR [Suspect]
     Active Substance: SORAFENIB
     Indication: HEPATOCELLULAR CARCINOMA
     Dosage: 800 MG DAILY
     Route: 048
     Dates: start: 20150219

REACTIONS (6)
  - Blood sodium decreased [None]
  - Asthenia [None]
  - Vomiting [Recovered/Resolved]
  - Hepatocellular carcinoma [Fatal]
  - Haematemesis [None]
  - Fatigue [None]

NARRATIVE: CASE EVENT DATE: 2015
